FAERS Safety Report 6914452-6 (Version None)
Quarter: 2010Q3

REPORT INFORMATION
  Report Type: 
  Country: None (occurrence: None)
  Receive Date: 20100805
  Receipt Date: 20100805
  Transmission Date: 20110219
  Serious: Yes (Life-Threatening, Other)
  Sender: FDA-Public Use
  Company Number: None

PATIENT
  Age: 44 Year
  Sex: Female
  Weight: 83.9154 kg

DRUGS (1)
  1. CHANTIX [Suspect]
     Indication: SMOKING CESSATION THERAPY
     Dosage: 1 TABLET 2 TIMES A DAY PO
     Route: 048
     Dates: start: 20100713, end: 20100803

REACTIONS (6)
  - ABNORMAL DREAMS [None]
  - ANXIETY [None]
  - HEADACHE [None]
  - PANIC ATTACK [None]
  - PARANOIA [None]
  - VOMITING [None]
